FAERS Safety Report 9571284 (Version 1)
Quarter: 2013Q3

REPORT INFORMATION
  Report Type: Spontaneous
  Country: US (occurrence: None)
  Receive Date: 20130927
  Receipt Date: 20130927
  Transmission Date: 20140515
  Serious: Yes (Disabling)
  Sender: FDA-Public Use
  Company Number: None

PATIENT
  Age: 44 Year
  Sex: 0

DRUGS (1)
  1. CIPROFLOXACIN [Suspect]
     Indication: HERPES ZOSTER
     Dates: start: 20130904, end: 20131010

REACTIONS (8)
  - Dizziness [None]
  - Confusional state [None]
  - Anxiety [None]
  - Diplopia [None]
  - Tinnitus [None]
  - Chest pain [None]
  - Palpitations [None]
  - Vision blurred [None]
